FAERS Safety Report 14452321 (Version 5)
Quarter: 2018Q1

REPORT INFORMATION
  Report Type: Spontaneous
  Country: IT (occurrence: IT)
  Receive Date: 20180129
  Receipt Date: 20180328
  Transmission Date: 20180509
  Serious: Yes (Hospitalization, Other)
  Sender: FDA-Public Use
  Company Number: IT-AUROBINDO-AUR-APL-2018-003647

PATIENT
  Age: 71 Year
  Sex: Male

DRUGS (26)
  1. IRBESARTAN. [Suspect]
     Active Substance: IRBESARTAN
     Indication: PRODUCT USED FOR UNKNOWN INDICATION
     Dosage: UNK
     Route: 065
  2. PRADAXA [Suspect]
     Active Substance: DABIGATRAN ETEXILATE MESYLATE
     Route: 065
  3. PRADAXA [Suspect]
     Active Substance: DABIGATRAN ETEXILATE MESYLATE
     Dosage: 300 MG, QD
     Route: 065
  4. SOTALOL. [Suspect]
     Active Substance: SOTALOL
     Route: 065
  5. PRADAXA [Suspect]
     Active Substance: DABIGATRAN ETEXILATE MESYLATE
     Route: 065
  6. SOTALOL. [Suspect]
     Active Substance: SOTALOL
     Dosage: 80 MILLIGRAM
     Route: 065
  7. SOTALOL. [Suspect]
     Active Substance: SOTALOL
     Route: 065
  8. SOTALOL. [Suspect]
     Active Substance: SOTALOL
     Dosage: 80 MG, QD
     Route: 065
  9. ATORVASTATIN [Suspect]
     Active Substance: ATORVASTATIN
     Indication: PRODUCT USED FOR UNKNOWN INDICATION
     Dosage: UNK
     Route: 065
  10. CLOPIDOGREL [Suspect]
     Active Substance: CLOPIDOGREL BISULFATE
     Indication: PRODUCT USED FOR UNKNOWN INDICATION
     Dosage: UNK
     Route: 065
  11. PANTOPRAZOLE [Concomitant]
     Active Substance: PANTOPRAZOLE
     Dosage: UNK ()
     Route: 065
  12. PRADAXA [Suspect]
     Active Substance: DABIGATRAN ETEXILATE MESYLATE
  13. IRBESARTAN. [Suspect]
     Active Substance: IRBESARTAN
     Indication: PRODUCT USED FOR UNKNOWN INDICATION
  14. PRADAXA [Suspect]
     Active Substance: DABIGATRAN ETEXILATE MESYLATE
     Indication: PRODUCT USED FOR UNKNOWN INDICATION
     Dosage: 300 MG, UNK
     Route: 065
  15. PRADAXA [Suspect]
     Active Substance: DABIGATRAN ETEXILATE MESYLATE
     Dosage: 300 MG, QD
     Route: 065
  16. FUROSEMIDE. [Suspect]
     Active Substance: FUROSEMIDE
     Indication: PRODUCT USED FOR UNKNOWN INDICATION
     Dosage: UNK
     Route: 065
  17. SOTALOL. [Suspect]
     Active Substance: SOTALOL
     Indication: PRODUCT USED FOR UNKNOWN INDICATION
     Dosage: 120 MILLIGRAM
     Route: 065
  18. SOTALOL. [Suspect]
     Active Substance: SOTALOL
     Dosage: 80 MG, QD
     Route: 065
  19. SOTALOL. [Suspect]
     Active Substance: SOTALOL
     Route: 065
  20. PRADAXA [Suspect]
     Active Substance: DABIGATRAN ETEXILATE MESYLATE
  21. SOTALOL. [Suspect]
     Active Substance: SOTALOL
     Dosage: 120 MG, QD
     Route: 065
  22. PRADAXA [Suspect]
     Active Substance: DABIGATRAN ETEXILATE MESYLATE
     Route: 065
  23. SOTALOL. [Suspect]
     Active Substance: SOTALOL
     Indication: PRODUCT USED FOR UNKNOWN INDICATION
     Dosage: 120 MG, ONCE A DAY
     Route: 065
  24. SOTALOL. [Suspect]
     Active Substance: SOTALOL
     Dosage: 120 MG, QD
     Route: 065
  25. PANTOPRAZOLE [Concomitant]
     Active Substance: PANTOPRAZOLE
     Indication: PRODUCT USED FOR UNKNOWN INDICATION
     Dosage: ()
     Route: 065
  26. PANTOPRAZOLE [Concomitant]
     Active Substance: PANTOPRAZOLE
     Dosage: ()
     Route: 065

REACTIONS (6)
  - Atrial flutter [Unknown]
  - Renal impairment [Unknown]
  - Arrhythmia [Unknown]
  - Cardiac ablation [Unknown]
  - Atrial thrombosis [Recovered/Resolved]
  - Haemoptysis [Recovered/Resolved]

NARRATIVE: CASE EVENT DATE: 201604
